FAERS Safety Report 8202519-4 (Version None)
Quarter: 2012Q1

REPORT INFORMATION
  Report Type: 
  Country: None (occurrence: None)
  Receive Date: 20120312
  Receipt Date: 20120302
  Transmission Date: 20120608
  Serious: Yes (Other)
  Sender: FDA-Public Use
  Company Number: US-JNJFOC-20120205599

PATIENT
  Sex: Male

DRUGS (7)
  1. SYNTHROID [Concomitant]
     Dosage: EMPTY STOMACH
     Route: 048
  2. LEVETIRACETAM [Concomitant]
     Route: 048
  3. XARELTO [Suspect]
     Indication: KNEE ARTHROPLASTY
     Route: 048
  4. LIPITOR [Concomitant]
     Route: 048
  5. LISINOPRIL [Concomitant]
     Route: 048
  6. ASPIRIN [Concomitant]
     Route: 048
  7. LABETALOL HCL [Concomitant]
     Route: 048

REACTIONS (2)
  - SWELLING [None]
  - HAEMATOMA [None]
